FAERS Safety Report 16283297 (Version 1)
Quarter: 2019Q2

REPORT INFORMATION
  Report Type: Spontaneous
  Country: US (occurrence: US)
  Receive Date: 20190507
  Receipt Date: 20190507
  Transmission Date: 20190711
  Serious: Yes (Other)
  Sender: FDA-Public Use
  Company Number: US-ASTRAZENECA-2018SF20962

PATIENT
  Age: 17931 Day
  Sex: Male

DRUGS (16)
  1. NEXIUM [Suspect]
     Active Substance: ESOMEPRAZOLE MAGNESIUM
     Route: 048
     Dates: start: 2011, end: 2018
  2. FUROSEMIDE. [Concomitant]
     Active Substance: FUROSEMIDE
  3. LANTUS [Concomitant]
     Active Substance: INSULIN GLARGINE
  4. DILTIAZEM. [Concomitant]
     Active Substance: DILTIAZEM
  5. ALLEGRA [Concomitant]
     Active Substance: FEXOFENADINE HYDROCHLORIDE
  6. ACIPHEX [Suspect]
     Active Substance: RABEPRAZOLE SODIUM
     Route: 065
     Dates: start: 2011, end: 2018
  7. SILVADENE [Concomitant]
     Active Substance: SILVER SULFADIAZINE
  8. NEXIUM [Suspect]
     Active Substance: ESOMEPRAZOLE MAGNESIUM
     Route: 048
     Dates: start: 20140107
  9. AMARYL [Concomitant]
     Active Substance: GLIMEPIRIDE
  10. BAYER ASPIRIN [Concomitant]
     Active Substance: ASPIRIN
  11. DILTIAZEM. [Concomitant]
     Active Substance: DILTIAZEM
  12. POTASSIUM CHLORIDE. [Concomitant]
     Active Substance: POTASSIUM CHLORIDE
  13. LASIX [Concomitant]
     Active Substance: FUROSEMIDE
  14. COZAAR [Concomitant]
     Active Substance: LOSARTAN POTASSIUM
  15. ACIPHEX [Suspect]
     Active Substance: RABEPRAZOLE SODIUM
     Route: 048
     Dates: start: 20110125
  16. HYDRALAZINE [Concomitant]
     Active Substance: HYDRALAZINE HYDROCHLORIDE

REACTIONS (2)
  - Clostridium difficile infection [Unknown]
  - Chronic kidney disease [Unknown]

NARRATIVE: CASE EVENT DATE: 20110317
